FAERS Safety Report 16798204 (Version 1)
Quarter: 2019Q4

REPORT INFORMATION
  Report Type: Spontaneous
  Country: US (occurrence: US)
  Receive Date: 20190911
  Receipt Date: 20190911
  Transmission Date: 20200122
  Serious: Yes (Hospitalization)
  Sender: FDA-Public Use
  Company Number: None

PATIENT
  Age: 26 Year
  Sex: Female

DRUGS (20)
  1. NYSTATIN ORAL SUSPENSION [Concomitant]
     Active Substance: NYSTATIN
     Dates: start: 20180419
  2. VIRT-PHOS [Concomitant]
     Dates: start: 20180507
  3. LOPERAMIDE [Concomitant]
     Active Substance: LOPERAMIDE
     Dates: start: 20180301
  4. PANTOPRAZOLE [Concomitant]
     Active Substance: PANTOPRAZOLE
     Dates: start: 20180215
  5. DULOXETINE DR [Concomitant]
     Active Substance: DULOXETINE
     Dates: start: 20180405
  6. MAGTAB SR [Concomitant]
     Dates: start: 20180314
  7. CALCITRIOL. [Concomitant]
     Active Substance: CALCITRIOL
     Dates: start: 20171204
  8. BUSPIRONE [Concomitant]
     Active Substance: BUSPIRONE HYDROCHLORIDE
     Dates: start: 20190604
  9. BUPROPION. [Concomitant]
     Active Substance: BUPROPION
     Dates: start: 20190507
  10. METOPROLOL TARTRATE. [Concomitant]
     Active Substance: METOPROLOL TARTRATE
     Dates: start: 20180410
  11. GABAPENTIN. [Concomitant]
     Active Substance: GABAPENTIN
     Dates: start: 20180424
  12. BASAGLAR [Concomitant]
     Active Substance: INSULIN GLARGINE
     Dates: start: 20190611
  13. NOVOLIN [Concomitant]
     Active Substance: INSULIN HUMAN
     Dates: start: 20180314
  14. SODIUM BICARBONATE. [Concomitant]
     Active Substance: SODIUM BICARBONATE
     Dates: start: 20171228
  15. HYDRALAZINE [Concomitant]
     Active Substance: HYDRALAZINE HYDROCHLORIDE
     Dates: start: 20180419
  16. LORATADINE. [Concomitant]
     Active Substance: LORATADINE
     Dates: start: 20180607
  17. FLONASE [Concomitant]
     Active Substance: FLUTICASONE PROPIONATE
     Dates: start: 20180607
  18. TACROLIMUS. [Suspect]
     Active Substance: TACROLIMUS
     Indication: INTESTINAL TRANSPLANT
     Route: 048
  19. VITAMIN D2 [Concomitant]
     Active Substance: ERGOCALCIFEROL
     Dates: start: 20180405
  20. HUMALOG [Concomitant]
     Active Substance: INSULIN LISPRO
     Dates: start: 20190607

REACTIONS (4)
  - Mental status changes [None]
  - Product substitution issue [None]
  - Drug level above therapeutic [None]
  - Feeling abnormal [None]

NARRATIVE: CASE EVENT DATE: 20190829
